FAERS Safety Report 6878328-5 (Version None)
Quarter: 2010Q3

REPORT INFORMATION
  Report Type: 
  Country: None (occurrence: None)
  Receive Date: 20100728
  Receipt Date: 20100722
  Transmission Date: 20110219
  Serious: Yes (Death)
  Sender: FDA-Public Use
  Company Number: JP-ABBOTT-10P-087-0648849-00

PATIENT
  Age: 84 Year
  Sex: Male
  Weight: 68 kg

DRUGS (6)
  1. LEUPROLIDE ACETATE [Suspect]
     Indication: PROSTATE CANCER STAGE II
     Route: 058
     Dates: start: 20080318, end: 20091019
  2. BICALUTAMIDE [Concomitant]
     Indication: PROSTATE CANCER STAGE II
     Route: 048
     Dates: end: 20081214
  3. BICALUTAMIDE [Concomitant]
     Route: 048
     Dates: start: 20090727, end: 20090824
  4. FLUTAMIDE [Concomitant]
     Indication: PROSTATE CANCER STAGE II
     Dates: start: 20081215, end: 20090727
  5. URSO 250 [Concomitant]
     Indication: LIVER DISORDER
     Dates: start: 20081215, end: 20090727
  6. URSO 250 [Concomitant]
     Indication: PROPHYLAXIS

REACTIONS (1)
  - DEATH [None]
